FAERS Safety Report 10291394 (Version 2)
Quarter: 2014Q3

REPORT INFORMATION
  Report Type: Spontaneous
  Country: US (occurrence: US)
  Receive Date: 20140710
  Receipt Date: 20140710
  Transmission Date: 20150326
  Serious: No
  Sender: FDA-Public Use
  Company Number: US-PURDUE-USA-2013-0104461

PATIENT
  Sex: Male
  Weight: 96.15 kg

DRUGS (1)
  1. BUTRANS [Suspect]
     Active Substance: BUPRENORPHINE
     Indication: PAIN
     Dosage: 10 MCG/HR, WEEKLY
     Route: 062
     Dates: start: 20130403, end: 20130701

REACTIONS (5)
  - Drug administered at inappropriate site [Unknown]
  - Application site irritation [Unknown]
  - Application site erythema [Unknown]
  - Application site burn [Unknown]
  - Application site scar [Unknown]
